FAERS Safety Report 15392513 (Version 1)
Quarter: 2018Q3

REPORT INFORMATION
  Report Type: Spontaneous
  Country: US (occurrence: US)
  Receive Date: 20180911
  Receipt Date: 20180911
  Transmission Date: 20181010
  Serious: No
  Sender: FDA-Public Use
  Company Number: None

PATIENT
  Age: 46 Year
  Sex: Female
  Weight: 62.1 kg

DRUGS (5)
  1. VITAMIN D [Concomitant]
     Active Substance: CHOLECALCIFEROL
  2. DILATIAZEM ER 180 MG [Suspect]
     Active Substance: DILTIAZEM HYDROCHLORIDE
     Indication: VENTRICULAR EXTRASYSTOLES
     Dosage: ?          QUANTITY:1 CAPSULE(S);?
     Route: 048
     Dates: start: 20171231, end: 20180911
  3. LISINOPRIL. [Concomitant]
     Active Substance: LISINOPRIL
  4. SINGULAIR [Concomitant]
     Active Substance: MONTELUKAST SODIUM
  5. ASMANEX [Concomitant]
     Active Substance: MOMETASONE FUROATE

REACTIONS (3)
  - Product use complaint [None]
  - Rash [None]
  - Skin hyperpigmentation [None]

NARRATIVE: CASE EVENT DATE: 20180720
